FAERS Safety Report 23980404 (Version 4)
Quarter: 2024Q4

REPORT INFORMATION
  Report Type: Report from Study
  Country: NL (occurrence: NL)
  Receive Date: 20240617
  Receipt Date: 20241022
  Transmission Date: 20250115
  Serious: Yes (Hospitalization)
  Sender: ABBVIE
  Company Number: NL-ABBVIE-5801130

PATIENT
  Sex: Female

DRUGS (4)
  1. CARBIDOPA\LEVODOPA [Suspect]
     Active Substance: CARBIDOPA\LEVODOPA
     Indication: Parkinson^s disease
     Dosage: MD: 10.0 ML, CD: 2.0ML/H, ED: 3.30ML; REMAINS AT 16 HOURS
     Route: 050
     Dates: start: 20240611, end: 20240611
  2. CARBIDOPA\LEVODOPA [Suspect]
     Active Substance: CARBIDOPA\LEVODOPA
     Route: 050
     Dates: start: 20200908
  3. CARBIDOPA\LEVODOPA [Suspect]
     Active Substance: CARBIDOPA\LEVODOPA
     Dosage: MD: 10.0 ML, CD: 2.0ML/H, ED: 3.30ML; REMAINS AT 16 HOURS
     Route: 050
     Dates: start: 20241016
  4. CARBIDOPA\LEVODOPA [Suspect]
     Active Substance: CARBIDOPA\LEVODOPA
     Dosage: MD: 10.0 ML, CD: 2.0ML/H, ED: 3.30ML
     Route: 050
     Dates: start: 20240611, end: 20241016

REACTIONS (20)
  - Muscle spasms [Recovered/Resolved]
  - Memory impairment [Not Recovered/Not Resolved]
  - Hyperphagia [Not Recovered/Not Resolved]
  - Tremor [Not Recovered/Not Resolved]
  - Sleep talking [Not Recovered/Not Resolved]
  - Loss of personal independence in daily activities [Recovered/Resolved]
  - Stoma site erythema [Not Recovered/Not Resolved]
  - Tension [Not Recovered/Not Resolved]
  - Dyskinesia [Not Recovered/Not Resolved]
  - Weight decreased [Not Recovered/Not Resolved]
  - Device issue [Recovered/Resolved]
  - Hyperkinesia [Not Recovered/Not Resolved]
  - Myalgia [Not Recovered/Not Resolved]
  - Device loosening [Recovered/Resolved]
  - On and off phenomenon [Not Recovered/Not Resolved]
  - Restlessness [Not Recovered/Not Resolved]
  - Bradykinesia [Not Recovered/Not Resolved]
  - Muscle rigidity [Not Recovered/Not Resolved]
  - Therapeutic product effect decreased [Not Recovered/Not Resolved]
  - Gastric ulcer [Not Recovered/Not Resolved]

NARRATIVE: CASE EVENT DATE: 20240101
